FAERS Safety Report 12548825 (Version 1)
Quarter: 2016Q3

REPORT INFORMATION
  Report Type: Spontaneous
  Country: US (occurrence: None)
  Receive Date: 20160711
  Receipt Date: 20160711
  Transmission Date: 20161109
  Serious: Yes (Other)
  Sender: FDA-Public Use
  Company Number: None

PATIENT
  Age: 28 Year
  Sex: Female
  Weight: 122 kg

DRUGS (1)
  1. NEXPLANON [Suspect]
     Active Substance: ETONOGESTREL
     Dates: start: 20160315, end: 20160328

REACTIONS (6)
  - Injection site infection [None]
  - Injection site reaction [None]
  - Injection site pain [None]
  - Skin lesion [None]
  - Erythema [None]
  - Injection site induration [None]

NARRATIVE: CASE EVENT DATE: 20160328
